FAERS Safety Report 5821207-2 (Version None)
Quarter: 2008Q3

REPORT INFORMATION
  Report Type: 
  Country: None (occurrence: None)
  Receive Date: 20080718
  Receipt Date: 20080718
  Transmission Date: 20090109
  Serious: No
  Sender: FDA-Public Use
  Company Number: None

PATIENT
  Age: 30 Year
  Sex: Male
  Weight: 117.9352 kg

DRUGS (2)
  1. SEROQUEL [Suspect]
     Indication: BIPOLAR DISORDER
     Dosage: 25 TO 100 MG QHS PO
     Route: 048
     Dates: start: 19990101, end: 20030601
  2. SEROQUEL [Suspect]
     Indication: SLEEP DISORDER THERAPY
     Dosage: 25 TO 100 MG QHS PO
     Route: 048
     Dates: start: 19990101, end: 20030601

REACTIONS (1)
  - TYPE 2 DIABETES MELLITUS [None]
